FAERS Safety Report 23476072 (Version 1)
Quarter: 2024Q1

REPORT INFORMATION
  Report Type: Report from Study
  Country: US (occurrence: US)
  Receive Date: 20240204
  Receipt Date: 20240204
  Transmission Date: 20240410
  Serious: No
  Sender: FDA-Public Use
  Company Number: US-EXELIXIS-CABO-23061538

PATIENT
  Sex: Male

DRUGS (9)
  1. CABOMETYX [Suspect]
     Active Substance: CABOZANTINIB S-MALATE
     Indication: Renal cancer
     Dosage: 20 MG, QD
     Dates: start: 20230209, end: 202303
  2. BENZONATATE [Concomitant]
     Active Substance: BENZONATATE
  3. METOPROLOL [Concomitant]
     Active Substance: METOPROLOL
  4. OMEPRAZOLE [Concomitant]
     Active Substance: OMEPRAZOLE
  5. LEVOTHYROXINE [Concomitant]
     Active Substance: LEVOTHYROXINE\LEVOTHYROXINE SODIUM
  6. CANDESARTAN [Concomitant]
     Active Substance: CANDESARTAN
  7. ISOSORBIDE [Concomitant]
     Active Substance: ISOSORBIDE
  8. XARELTO [Concomitant]
     Active Substance: RIVAROXABAN
  9. PREDNISONE [Concomitant]
     Active Substance: PREDNISONE

REACTIONS (6)
  - Genital rash [Recovering/Resolving]
  - Dysphonia [Unknown]
  - Constipation [Recovered/Resolved]
  - Weight decreased [Recovered/Resolved]
  - Fatigue [Recovering/Resolving]
  - Dyspnoea [Recovering/Resolving]
